FAERS Safety Report 25801906 (Version 3)
Quarter: 2025Q4

REPORT INFORMATION
  Report Type: Spontaneous
  Country: GB (occurrence: GB)
  Receive Date: 20250915
  Receipt Date: 20251003
  Transmission Date: 20260118
  Serious: Yes (Hospitalization, Other)
  Sender: MYLAN
  Company Number: GB-MYLANLABS-2025M1077527

PATIENT
  Age: 55 Year
  Sex: Female
  Weight: 128.3 kg

DRUGS (1)
  1. CLOZARIL [Suspect]
     Active Substance: CLOZAPINE
     Indication: Schizophrenia
     Dosage: UNK
     Dates: start: 20200116, end: 20250906

REACTIONS (3)
  - Chronic obstructive pulmonary disease [Unknown]
  - Cardiac failure congestive [Recovering/Resolving]
  - Differential white blood cell count abnormal [Unknown]
